FAERS Safety Report 6787570-3 (Version None)
Quarter: 2010Q2

REPORT INFORMATION
  Report Type: 
  Country: None (occurrence: None)
  Receive Date: 20100623
  Receipt Date: 20051111
  Transmission Date: 20101027
  Serious: No
  Sender: FDA-Public Use
  Company Number: US-PFIZER INC-2007056392

PATIENT
  Sex: Female

DRUGS (3)
  1. GEODON [Suspect]
  2. LAMICTAL [Suspect]
  3. PAMELOR [Suspect]

REACTIONS (2)
  - DYSGEUSIA [None]
  - POLLAKIURIA [None]
